FAERS Safety Report 23602433 (Version 1)
Quarter: 2024Q1

REPORT INFORMATION
  Report Type: Spontaneous
  Country: US (occurrence: None)
  Receive Date: 20240306
  Receipt Date: 20240306
  Transmission Date: 20240409
  Serious: Yes (Hospitalization)
  Sender: FDA-Public Use
  Company Number: None

PATIENT
  Age: 70 Year
  Sex: Female
  Weight: 50.8 kg

DRUGS (1)
  1. VINCRISTINE SULFATE [Suspect]
     Active Substance: VINCRISTINE SULFATE
     Dates: end: 20240228

REACTIONS (4)
  - Urine output decreased [None]
  - Suprapubic pain [None]
  - Urinary tract infection [None]
  - Complication associated with device [None]

NARRATIVE: CASE EVENT DATE: 20240304
